FAERS Safety Report 4910806-8 (Version None)
Quarter: 2006Q1

REPORT INFORMATION
  Report Type: 
  Country: None (occurrence: None)
  Receive Date: 20060214
  Receipt Date: 20050928
  Transmission Date: 20060701
  Serious: Yes (Congenital Anomaly)
  Sender: FDA-Public Use
  Company Number: US-GLAXOSMITHKLINE-A0576442B

PATIENT
  Sex: Male
  Weight: 3.2 kg

DRUGS (6)
  1. COMBIVIR [Suspect]
     Indication: HIV INFECTION
     Dosage: 2TAB PER DAY
     Dates: start: 20050623
  2. VIRAMUNE [Concomitant]
     Indication: HIV INFECTION
     Dosage: 2TAB PER DAY
     Dates: start: 20050623, end: 20050707
  3. PRENATAL VITAMINS [Concomitant]
     Dosage: 1TAB PER DAY
     Dates: start: 20050623
  4. FERROUS SULFATE TAB [Concomitant]
     Dosage: 325MG PER DAY
     Dates: start: 20050914
  5. NITROFURANTOIN [Concomitant]
     Dosage: 2CAP PER DAY
     Route: 048
     Dates: start: 20050922
  6. VIRAMUNE [Concomitant]
     Dates: start: 20050707

REACTIONS (2)
  - DRUG EXPOSURE DURING PREGNANCY [None]
  - POLYDACTYLY [None]
